FAERS Safety Report 12654228 (Version 1)
Quarter: 2016Q3

REPORT INFORMATION
  Report Type: Spontaneous
  Country: US (occurrence: None)
  Receive Date: 20160815
  Receipt Date: 20160815
  Transmission Date: 20161109
  Serious: No
  Sender: FDA-Public Use
  Company Number: None

PATIENT
  Age: 60 Year
  Sex: Male
  Weight: 88.5 kg

DRUGS (2)
  1. MLN8237 40MG BID (ALISETIB) [Suspect]
     Active Substance: ALISERTIB
     Indication: NEUROENDOCRINE CARCINOMA
     Dosage: 40MG BID D1-3, D8-10, D15-17 PO
     Route: 048
     Dates: start: 20160404, end: 20160725
  2. ABRAXANE [Suspect]
     Active Substance: PACLITAXEL
     Indication: NEUROENDOCRINE CARCINOMA
     Dosage: 100MG/M2 D1,8,15 PER 28 DAYS IV
     Route: 042
     Dates: start: 20160404, end: 20160725

REACTIONS (5)
  - Hypoaesthesia [None]
  - Facial paralysis [None]
  - Asthenia [None]
  - Cerebrovascular accident [None]
  - Fatigue [None]

NARRATIVE: CASE EVENT DATE: 20160805
